FAERS Safety Report 8862741 (Version 1)
Quarter: 2012Q4

REPORT INFORMATION
  Report Type: 
  Country: FR (occurrence: FR)
  Receive Date: 20121026
  Receipt Date: 20121026
  Transmission Date: 20130627
  Serious: Yes (Life-Threatening, Hospitalization, Other)
  Sender: FDA-Public Use
  Company Number: PHHY2012FR095983

PATIENT
  Age: 84 Year
  Sex: Male

DRUGS (2)
  1. VOLTARENE [Suspect]
     Indication: PAIN
     Dosage: 50 mg daily
     Route: 048
     Dates: start: 20120321, end: 20120323
  2. XARELTO [Suspect]
     Indication: KNEE ARTHROPLASTY
     Dosage: 30 mg daily
     Route: 048
     Dates: start: 20120321

REACTIONS (3)
  - Duodenal ulcer [Recovered/Resolved]
  - Gastrointestinal ulcer haemorrhage [Recovered/Resolved]
  - Intentional drug misuse [Unknown]
